FAERS Safety Report 13508617 (Version 4)
Quarter: 2017Q3

REPORT INFORMATION
  Report Type: Spontaneous
  Country: BR (occurrence: BR)
  Receive Date: 20170503
  Receipt Date: 20170825
  Transmission Date: 20171127
  Serious: Yes (Hospitalization, Other)
  Sender: FDA-Public Use
  Company Number: BR-GLAXOSMITHKLINE-BR2016GSK148978

PATIENT
  Sex: Male
  Weight: 84 kg

DRUGS (3)
  1. BENLYSTA [Suspect]
     Active Substance: BELIMUMAB
     Dosage: UNK
     Dates: start: 20170214
  2. BENLYSTA [Suspect]
     Active Substance: BELIMUMAB
     Dosage: UNK
     Dates: start: 20170427
  3. BENLYSTA [Suspect]
     Active Substance: BELIMUMAB
     Indication: SYSTEMIC LUPUS ERYTHEMATOSUS
     Dosage: UNK
     Dates: start: 20160315

REACTIONS (9)
  - Secretion discharge [Not Recovered/Not Resolved]
  - Weight decreased [Unknown]
  - Pleural effusion [Unknown]
  - Vein rupture [Unknown]
  - Cough [Not Recovered/Not Resolved]
  - Inappropriate schedule of drug administration [Recovered/Resolved]
  - Pulmonary oedema [Unknown]
  - Anaemia [Recovered/Resolved]
  - Circumstance or information capable of leading to medication error [Unknown]
